FAERS Safety Report 20077690 (Version 1)
Quarter: 2021Q4

REPORT INFORMATION
  Report Type: Spontaneous
  Country: CA (occurrence: CA)
  Receive Date: 20211116
  Receipt Date: 20211116
  Transmission Date: 20220303
  Serious: Yes (Other)
  Sender: FDA-Public Use
  Company Number: CA-BAXTER-2021BAX035516

PATIENT
  Age: 33 Year
  Sex: Male

DRUGS (4)
  1. CYCLOPHOSPHAMIDE [Suspect]
     Active Substance: CYCLOPHOSPHAMIDE
     Indication: Product used for unknown indication
     Dosage: 6 REGIMENS OF POLY-CHEMOTHERAPY CYCLOPHOSPHAMIDE (CHP)+BRENTUXIMAB
     Route: 065
  2. CYTARABINE [Suspect]
     Active Substance: CYTARABINE
     Indication: Product used for unknown indication
     Route: 065
  3. METHOTREXATE SODIUM [Suspect]
     Active Substance: METHOTREXATE SODIUM
     Indication: Product used for unknown indication
     Route: 065
  4. BRENTUXIMAB [Suspect]
     Active Substance: BRENTUXIMAB
     Indication: Product used for unknown indication
     Dosage: 6 REGIMENS OF POLY-CHEMOTHERAPY CYCLOPHOSPHAMIDE (CHP)+BRENTUXIMAB
     Route: 065

REACTIONS (2)
  - Bedridden [Unknown]
  - Neoplasm progression [Not Recovered/Not Resolved]
